FAERS Safety Report 7558967-9 (Version None)
Quarter: 2011Q2

REPORT INFORMATION
  Report Type: 
  Country: None (occurrence: None)
  Receive Date: 20110621
  Receipt Date: 20110609
  Transmission Date: 20111010
  Serious: Yes (Hospitalization)
  Sender: FDA-Public Use
  Company Number: DE-JNJFOC-20110608248

PATIENT
  Age: 68 Year
  Sex: Male

DRUGS (4)
  1. CORTISONE [Concomitant]
     Dates: start: 20100501
  2. METHOTREXATE [Concomitant]
     Dates: start: 20100501
  3. GOLIMUMAB [Suspect]
     Indication: RHEUMATOID ARTHRITIS
     Route: 058
     Dates: start: 20110422, end: 20110423
  4. GOLIMUMAB [Suspect]
     Route: 058
     Dates: start: 20100322

REACTIONS (1)
  - CEREBELLAR INFARCTION [None]
